FAERS Safety Report 5652445-X (Version None)
Quarter: 2008Q1

REPORT INFORMATION
  Report Type: 
  Country: None (occurrence: None)
  Receive Date: 20080305
  Receipt Date: 20080305
  Transmission Date: 20080703
  Serious: Yes (Congenital Anomaly)
  Sender: FDA-Public Use
  Company Number: None

PATIENT
  Age: 22 Year
  Sex: Female
  Weight: 49.8957 kg

DRUGS (2)
  1. ROBITUSSIN [Suspect]
     Indication: COUGH
     Dosage: 2 TEASPOONS EVERY 4 HOURS
     Dates: start: 20080303, end: 20080304
  2. ROBITUSSIN [Suspect]
     Indication: RHINORRHOEA
     Dosage: 2 TEASPOONS EVERY 4 HOURS
     Dates: start: 20080303, end: 20080304

REACTIONS (2)
  - AURICULAR SWELLING [None]
  - SWELLING FACE [None]
